FAERS Safety Report 6110392-3 (Version None)
Quarter: 2009Q1

REPORT INFORMATION
  Report Type: 
  Country: None (occurrence: None)
  Receive Date: 20090310
  Receipt Date: 20090304
  Transmission Date: 20090719
  Serious: Yes (Other)
  Sender: FDA-Public Use
  Company Number: US-JNJCH-2008023787

PATIENT
  Age: 86 Year
  Sex: Female
  Weight: 77.1 kg

DRUGS (1)
  1. FRESHBURST LISTERINE [Suspect]
     Indication: DENTAL DISORDER PROPHYLAXIS
     Dosage: TEXT:A HALF OF A CAPFUL TWICE A DAY
     Route: 048

REACTIONS (1)
  - GINGIVAL INFECTION [None]
